FAERS Safety Report 9608716 (Version 1)
Quarter: 2013Q4

REPORT INFORMATION
  Report Type: Spontaneous
  Country: FR (occurrence: FR)
  Receive Date: 20131009
  Receipt Date: 20131009
  Transmission Date: 20140711
  Serious: Yes (Hospitalization)
  Sender: FDA-Public Use
  Company Number: FR-PFIZER INC-2013285804

PATIENT
  Age: 74 Year
  Sex: Male

DRUGS (15)
  1. LYRICA [Suspect]
     Indication: NEURALGIA
     Dosage: 50 MG, 2X/DAY IN THE MORNING AND IN THE EVENING
     Route: 048
     Dates: start: 20120111, end: 20120113
  2. LYRICA [Suspect]
     Dosage: 75 MG, 2X/DAY
     Route: 048
     Dates: start: 20120114, end: 20120116
  3. TRAMADOL HYDROCHLORIDE [Concomitant]
  4. PERCUTALGINE [Concomitant]
  5. HEXAQUINE [Concomitant]
  6. TAHOR [Concomitant]
  7. COZAAR [Concomitant]
  8. PARACETAMOL [Concomitant]
  9. COLCHICINE [Concomitant]
  10. ALLOPURINOL [Concomitant]
  11. PLAVIX [Concomitant]
  12. LEVOTHYROX [Concomitant]
  13. DEDROGYL [Concomitant]
  14. INSULATARD [Concomitant]
  15. AERIUS [Concomitant]

REACTIONS (1)
  - Neutropenia [Recovered/Resolved]
